FAERS Safety Report 24935130 (Version 2)
Quarter: 2025Q1

REPORT INFORMATION
  Report Type: Spontaneous
  Country: PT (occurrence: PT)
  Receive Date: 20250206
  Receipt Date: 20250218
  Transmission Date: 20250409
  Serious: Yes (Other)
  Sender: TEVA
  Company Number: PT-TEVA-VS-3293132

PATIENT
  Age: 56 Year
  Sex: Female

DRUGS (4)
  1. FREMANEZUMAB [Suspect]
     Active Substance: FREMANEZUMAB
     Indication: Migraine
     Route: 065
  2. VITAMIN D NOS [Concomitant]
     Active Substance: CHOLECALCIFEROL\ERGOCALCIFEROL
     Indication: Rheumatoid arthritis
     Route: 065
  3. PREDNISOLONE [Concomitant]
     Active Substance: PREDNISOLONE
     Indication: Rheumatoid arthritis
     Route: 065
  4. METHOTREXATE [Suspect]
     Active Substance: METHOTREXATE
     Indication: Rheumatoid arthritis
     Route: 065

REACTIONS (2)
  - Rheumatoid arthritis [Recovered/Resolved]
  - Gastrointestinal disorder [Unknown]
